FAERS Safety Report 12448559 (Version 3)
Quarter: 2019Q1

REPORT INFORMATION
  Report Type: Spontaneous
  Country: FR (occurrence: FR)
  Receive Date: 20160608
  Receipt Date: 20190125
  Transmission Date: 20190417
  Serious: Yes (Death, Life-Threatening, Hospitalization)
  Sender: FDA-Public Use
  Company Number: FR-JNJFOC-20160601748

PATIENT
  Age: 63 Year
  Sex: Male

DRUGS (5)
  1. FOLIC ACID. [Concomitant]
     Active Substance: FOLIC ACID
  2. BACTRIM [Concomitant]
     Active Substance: SULFAMETHOXAZOLE\TRIMETHOPRIM
  3. NEBIVOLOL. [Concomitant]
     Active Substance: NEBIVOLOL
     Indication: VENTRICULAR EXTRASYSTOLES
     Dosage: 1/2 TABLET PER DAY
     Route: 048
     Dates: start: 201602
  4. ZELITREX [Concomitant]
     Active Substance: VALACYCLOVIR HYDROCHLORIDE
  5. IMBRUVICA [Suspect]
     Active Substance: IBRUTINIB
     Indication: CHRONIC LYMPHOCYTIC LEUKAEMIA
     Route: 048
     Dates: start: 20160119, end: 20160525

REACTIONS (7)
  - Ventricular extrasystoles [Recovered/Resolved]
  - Cardiac arrest [Recovering/Resolving]
  - Hypokalaemia [Unknown]
  - Encephalopathy [Unknown]
  - Gastroenteritis [Unknown]
  - Ventricular fibrillation [Recovered/Resolved]
  - Ventricular arrhythmia [Fatal]

NARRATIVE: CASE EVENT DATE: 20160525
